FAERS Safety Report 11201368 (Version 4)
Quarter: 2015Q3

REPORT INFORMATION
  Report Type: Spontaneous
  Country: US (occurrence: US)
  Receive Date: 20150619
  Receipt Date: 20150807
  Transmission Date: 20151125
  Serious: Yes (Other)
  Sender: FDA-Public Use
  Company Number: US-RECORDATI RARE DISEASES-US-RRD-14-00069

PATIENT
  Sex: Female
  Weight: 72.64 kg

DRUGS (3)
  1. TRANXENE T-TAB [Suspect]
     Active Substance: CLORAZEPATE DIPOTASSIUM
     Indication: CARDIAC DISORDER
     Dosage: ONE WHOLE PILL - REDUCED TO 1/4 OR 1/2 (AS NECESSARY)
     Route: 048
     Dates: start: 1981
  2. TRANXENE T-TAB [Suspect]
     Active Substance: CLORAZEPATE DIPOTASSIUM
     Dosage: ONE WHOLE PILL - REDUCED TO 1/4 OR 1/2 (AS NECESSARY)
     Route: 048
  3. TRANXENE T-TAB [Suspect]
     Active Substance: CLORAZEPATE DIPOTASSIUM
     Indication: CHEST PAIN
     Route: 048

REACTIONS (6)
  - Palpitations [Unknown]
  - Drug withdrawal syndrome [Recovered/Resolved]
  - Cardiac disorder [Recovered/Resolved]
  - Wrong technique in product usage process [None]
  - Chest discomfort [None]
  - Off label use [Not Recovered/Not Resolved]
